FAERS Safety Report 6099627-3 (Version None)
Quarter: 2009Q1

REPORT INFORMATION
  Report Type: 
  Country: None (occurrence: None)
  Receive Date: 20090303
  Receipt Date: 20090226
  Transmission Date: 20090719
  Serious: Yes (Life-Threatening, Hospitalization)
  Sender: FDA-Public Use
  Company Number: US-ROCHE-598228

PATIENT
  Sex: Female
  Weight: 53.1 kg

DRUGS (12)
  1. NAPROXEN [Suspect]
     Indication: DRUG USE FOR UNKNOWN INDICATION
     Dosage: FORM: PILLS
     Route: 065
  2. NAPROXEN [Suspect]
     Dosage: OVERDOSE
     Route: 065
  3. CYMBALTA [Suspect]
     Indication: DEPRESSION
     Dosage: FORM: PILLS, DOSAGE: 1 DAILY
     Route: 065
  4. CYMBALTA [Suspect]
     Dosage: OVERDOSE
     Route: 065
  5. ZYRTEC [Suspect]
     Indication: DRUG USE FOR UNKNOWN INDICATION
     Route: 065
  6. ZYRTEC [Suspect]
     Route: 065
  7. FLUOXETINE [Suspect]
     Indication: DRUG USE FOR UNKNOWN INDICATION
     Dosage: FORM: PILL
     Route: 065
  8. FLUOXETINE [Suspect]
     Dosage: OVERDOSE
     Route: 065
  9. RISPERIDONE [Suspect]
     Indication: DRUG USE FOR UNKNOWN INDICATION
     Dosage: FORM: PILLS
     Route: 065
  10. RISPERIDONE [Suspect]
     Dosage: OVERDOSE
     Route: 065
  11. DULOXETINE [Suspect]
     Indication: DRUG USE FOR UNKNOWN INDICATION
     Dosage: FORM: PILL
     Route: 065
  12. DULOXETINE [Suspect]
     Dosage: OVERDOSE
     Route: 065

REACTIONS (2)
  - OVERDOSE [None]
  - SUICIDE ATTEMPT [None]
